FAERS Safety Report 8831299 (Version 2)
Quarter: 2012Q4

REPORT INFORMATION
  Report Type: Report from Study
  Country: JP (occurrence: JP)
  Receive Date: 20121008
  Receipt Date: 20121212
  Transmission Date: 20130627
  Serious: Yes (Other)
  Sender: FDA-Public Use
  Company Number: JP-VERTEX PHARMACEUTICAL INC.-AE-2012-011742

PATIENT
  Age: 71 Year
  Sex: Male

DRUGS (14)
  1. VX-950 (TELAPREVIR) [Suspect]
     Indication: CHRONIC HEPATITIS C
     Dosage: 1500 mg, qd
     Route: 048
     Dates: start: 20120612, end: 20120731
  2. REBETOL [Suspect]
     Indication: CHRONIC HEPATITIS C
     Dosage: 800 mg, qd
     Route: 048
     Dates: start: 20120612, end: 20120716
  3. REBETOL [Suspect]
     Dosage: 600 mg, qd
     Route: 048
     Dates: start: 20120717, end: 20120807
  4. REBETOL [Suspect]
     Dosage: 400 mg, qd
     Route: 048
     Dates: start: 20120904
  5. PEGINTRON                          /01543001/ [Suspect]
     Indication: CHRONIC HEPATITIS C
     Dosage: 1.5 ?g/kg, qw
     Route: 058
     Dates: start: 20120612, end: 20120628
  6. PEGINTRON                          /01543001/ [Suspect]
     Dosage: 0.75 ?g/kg, qw
     Route: 058
     Dates: start: 20120703
  7. PEGINTRON                          /01543001/ [Suspect]
     Dosage: 0.8 ?g/kg, qw
     Route: 058
     Dates: end: 20120807
  8. PEGINTRON                          /01543001/ [Suspect]
     Dosage: 0.8 ?g/kg, qw
     Route: 058
     Dates: start: 20120828
  9. URSO                               /00465701/ [Concomitant]
     Dosage: 600 mg, qd
     Route: 048
     Dates: end: 20120717
  10. BAYASPIRIN [Concomitant]
     Dosage: 100 mg, qd
     Route: 048
  11. ACECOL [Concomitant]
     Dosage: 2 mg, qd
     Route: 048
  12. ARTIST [Concomitant]
     Dosage: 10 mg, qd
     Route: 048
  13. SIGMART [Concomitant]
     Dosage: 15 mg, qd
     Route: 048
  14. ZYLORIC [Concomitant]
     Dosage: 200 mg, qd
     Route: 048
     Dates: end: 20120910

REACTIONS (4)
  - Erythema multiforme [Recovered/Resolved]
  - Haemoglobin decreased [Not Recovered/Not Resolved]
  - Haemoglobin decreased [Recovered/Resolved]
  - Retinopathy [Unknown]
